FAERS Safety Report 9586897 (Version 1)
Quarter: 2013Q4

REPORT INFORMATION
  Report Type: Spontaneous
  Country: US (occurrence: US)
  Receive Date: 20131003
  Receipt Date: 20131003
  Transmission Date: 20140711
  Serious: Yes (Other)
  Sender: FDA-Public Use
  Company Number: US-FRI-1000049462

PATIENT
  Sex: Female

DRUGS (1)
  1. CELEXA [Suspect]
     Dates: start: 2007

REACTIONS (2)
  - Breast abscess [Unknown]
  - Mastitis [Unknown]
